FAERS Safety Report 10024547 (Version 2)
Quarter: 2014Q1

REPORT INFORMATION
  Report Type: Spontaneous
  Country: AT (occurrence: AT)
  Receive Date: 20140320
  Receipt Date: 20140326
  Transmission Date: 20141002
  Serious: Yes (Other)
  Sender: FDA-Public Use
  Company Number: PHHY2014AT032878

PATIENT
  Age: 76 Year
  Sex: Male

DRUGS (2)
  1. EXFORGE HCT [Suspect]
     Indication: HYPERTENSION
     Dosage: 1 DF (VALS 160 MG / AMLO 10 MG / HYDR 12.5 MG)
  2. EXFORGE HCT [Suspect]
     Dosage: 1 DF,  (VALS 160 MG / AMLO 5 MG / HYDR 12.5 MG)

REACTIONS (1)
  - Blood pressure increased [Unknown]
